FAERS Safety Report 10040605 (Version 1)
Quarter: 2014Q1

REPORT INFORMATION
  Report Type: Spontaneous
  Country: US (occurrence: None)
  Receive Date: 20140326
  Receipt Date: 20140326
  Transmission Date: 20141002
  Serious: No
  Sender: FDA-Public Use
  Company Number: None

PATIENT
  Age: 59 Year
  Sex: Male
  Weight: 73.03 kg

DRUGS (4)
  1. TERBINAFINE [Suspect]
     Indication: TINEA PEDIS
     Route: 048
     Dates: start: 20131018, end: 20131215
  2. LISINOPRIL [Concomitant]
  3. LOW DOSE ASPIRIN [Concomitant]
  4. MULTIVITAMIN MEN 50+ DAILY [Concomitant]

REACTIONS (2)
  - Ageusia [None]
  - Dysgeusia [None]
